FAERS Safety Report 14418724 (Version 1)
Quarter: 2018Q1

REPORT INFORMATION
  Report Type: Spontaneous
  Country: SK (occurrence: SK)
  Receive Date: 20180122
  Receipt Date: 20180122
  Transmission Date: 20180509
  Serious: Yes (Death, Other)
  Sender: FDA-Public Use
  Company Number: SK-TEVA-2018-SK-850371

PATIENT
  Age: 71 Year
  Sex: Male
  Weight: 75 kg

DRUGS (5)
  1. INSULIN [Concomitant]
     Active Substance: INSULIN NOS
     Indication: DIABETES MELLITUS
  2. NAB-PACLITAXEL [Suspect]
     Active Substance: PACLITAXEL
     Indication: PANCREATIC CARCINOMA METASTATIC
     Dosage: ON 1., 8., 15 DAY EVERY 28 DAYS
     Route: 065
     Dates: start: 20161220, end: 201702
  3. GEMCITABINE [Suspect]
     Active Substance: GEMCITABINE\GEMCITABINE HYDROCHLORIDE
     Indication: PANCREATIC CARCINOMA METASTATIC
     Dosage: ON 1., 8., 15 DAY EVERY 28 DAYS
     Route: 042
     Dates: start: 20161220, end: 201702
  4. GEMCITABINE [Suspect]
     Active Substance: GEMCITABINE\GEMCITABINE HYDROCHLORIDE
     Dosage: ON 1., 8., 15 DAY EVERY 28 DAYS
     Route: 065
     Dates: start: 201702, end: 201705
  5. NAB-PACLITAXEL [Suspect]
     Active Substance: PACLITAXEL
     Dosage: ON 1., 8., 15 DAY EVERY 28 DAYS
     Route: 065
     Dates: start: 201702, end: 201705

REACTIONS (3)
  - Thrombocytopenia [Unknown]
  - Leukocyturia [Unknown]
  - Urinary tract infection bacterial [Unknown]

NARRATIVE: CASE EVENT DATE: 201702
